FAERS Safety Report 7918903-X (Version None)
Quarter: 2011Q4

REPORT INFORMATION
  Report Type: 
  Country: None (occurrence: None)
  Receive Date: 20111116
  Receipt Date: 20111110
  Transmission Date: 20120403
  Serious: Yes (Death)
  Sender: FDA-Public Use
  Company Number: US-CELGENEUS-163-21880-09100787

PATIENT
  Sex: Male

DRUGS (5)
  1. DAUNORUBICIN HCL [Concomitant]
     Route: 065
  2. CYTARABINE [Concomitant]
     Route: 065
  3. THIOGUANINE [Concomitant]
  4. REVLIMID [Suspect]
     Indication: MYELODYSPLASTIC SYNDROME
     Dosage: 10 MILLIGRAM
     Route: 048
     Dates: start: 20090506
  5. CLOFARABINE [Concomitant]
     Route: 065

REACTIONS (2)
  - MYELODYSPLASTIC SYNDROME TRANSFORMATION [None]
  - DRUG INEFFECTIVE [None]
